FAERS Safety Report 6579585-5 (Version None)
Quarter: 2010Q1

REPORT INFORMATION
  Report Type: 
  Country: None (occurrence: None)
  Receive Date: 20100212
  Receipt Date: 20100202
  Transmission Date: 20100710
  Serious: Yes (Hospitalization, Other)
  Sender: FDA-Public Use
  Company Number: FR-PFIZER INC-2010004759

PATIENT
  Age: 66 Year
  Sex: Female

DRUGS (1)
  1. SOMAVERT [Suspect]
     Indication: PITUITARY TUMOUR
     Dosage: UNK

REACTIONS (2)
  - ARTHRITIS [None]
  - INFLAMMATION [None]
